FAERS Safety Report 6424226-0 (Version None)
Quarter: 2009Q4

REPORT INFORMATION
  Report Type: 
  Country: None (occurrence: None)
  Receive Date: 20091102
  Receipt Date: 20091021
  Transmission Date: 20100525
  Serious: Yes (Death, Hospitalization)
  Sender: FDA-Public Use
  Company Number: US-PFIZER INC-2006077622

PATIENT
  Sex: Male
  Weight: 75.3 kg

DRUGS (14)
  1. SUNITINIB MALATE [Suspect]
     Indication: RENAL CELL CARCINOMA
     Dosage: 50 MG, 1X/DAY
     Route: 048
     Dates: start: 20060127, end: 20060523
  2. DIGOXIN [Concomitant]
     Route: 048
     Dates: start: 20050323
  3. PROSCAR [Concomitant]
     Route: 048
     Dates: start: 20050323
  4. ACETYLSALICYLIC ACID [Concomitant]
     Route: 048
     Dates: start: 20050323
  5. SAW PALMETTO [Concomitant]
     Route: 048
     Dates: start: 20050323
  6. FOLIC ACID [Concomitant]
     Route: 048
     Dates: start: 20050323
  7. COLACE [Concomitant]
     Route: 048
     Dates: start: 20051003
  8. MIRALAX [Concomitant]
     Route: 048
     Dates: start: 20051003
  9. TAMSULOSIN HYDROCHLORIDE [Concomitant]
     Route: 048
     Dates: start: 20060112
  10. DEXAMETHASONE [Concomitant]
     Route: 048
     Dates: start: 20060112
  11. NEURONTIN [Concomitant]
     Route: 048
     Dates: start: 20060112
  12. FENTANYL-100 [Concomitant]
     Route: 061
     Dates: start: 20060112
  13. OXYCODONE [Concomitant]
     Route: 048
     Dates: start: 20060112
  14. LISINOPRIL [Concomitant]
     Route: 048
     Dates: start: 20060201

REACTIONS (4)
  - DEEP VEIN THROMBOSIS [None]
  - DISEASE PROGRESSION [None]
  - HAEMORRHAGE [None]
  - RENAL CELL CARCINOMA [None]
